FAERS Safety Report 13216227 (Version 3)
Quarter: 2020Q2

REPORT INFORMATION
  Report Type: Report from Study
  Country: US (occurrence: US)
  Receive Date: 20170209
  Receipt Date: 20200412
  Transmission Date: 20200713
  Serious: Yes (Other)
  Sender: FDA-Public Use
  Company Number: US-ROCHE-1712657

PATIENT

DRUGS (2)
  1. IBRUTINIB [Suspect]
     Active Substance: IBRUTINIB
     Indication: B-CELL LYMPHOMA
     Dosage: IN ARM 1, PATIENTS RECEIVED IBRUTINIB 560 MG ONCE DAILY COMBINED WITH RITUXIMAB. IN ARM 2, PATIENTS
     Route: 048
  2. RITUXIMAB. [Suspect]
     Active Substance: RITUXIMAB
     Indication: B-CELL LYMPHOMA
     Dosage: IN ARM 1, 375 MG/M2 IV ONCE WEEKLY FOR 4 DOSES FOR THE FIRST 4 WEEKS OF THE STUDY. IN ARM 2, 375 MG/
     Route: 042

REACTIONS (29)
  - Rectal haemorrhage [Unknown]
  - Ventricular tachycardia [Unknown]
  - Pneumonia cryptococcal [Unknown]
  - Urinary tract infection [Unknown]
  - Dyspnoea [Unknown]
  - Fatigue [Unknown]
  - Febrile neutropenia [Unknown]
  - Stomatitis [Unknown]
  - Paraesthesia [Unknown]
  - Ear haemorrhage [Unknown]
  - Constipation [Unknown]
  - Atrial fibrillation [Unknown]
  - Hypertension [Unknown]
  - Syncope [Unknown]
  - Cough [Unknown]
  - Neutropenia [Unknown]
  - Pneumonia [Unknown]
  - Dizziness [Unknown]
  - Abdominal pain [Unknown]
  - Pyrexia [Unknown]
  - Diarrhoea [Unknown]
  - Bradycardia [Unknown]
  - Nausea [Unknown]
  - Headache [Unknown]
  - Arthralgia [Unknown]
  - Rash maculo-papular [Unknown]
  - Myalgia [Unknown]
  - Vomiting [Unknown]
  - Muscle spasms [Unknown]
